FAERS Safety Report 14277836 (Version 3)
Quarter: 2017Q4

REPORT INFORMATION
  Report Type: Spontaneous
  Country: CH (occurrence: CH)
  Receive Date: 20171212
  Receipt Date: 20171212
  Transmission Date: 20180321
  Serious: Yes (Hospitalization)
  Sender: FDA-Public Use
  Company Number: CH-ELEFSEE PHARMACEUTICALS INTERNATIONAL-CH-2017DEP002350

PATIENT

DRUGS (1)
  1. FENTANYL. [Suspect]
     Active Substance: FENTANYL
     Indication: PAIN
     Dosage: 800 ?G, QD
     Route: 037
     Dates: start: 201603

REACTIONS (7)
  - Accidental overdose [None]
  - Oxygen saturation decreased [None]
  - Miosis [Unknown]
  - Respiratory depression [Unknown]
  - Incorrect dose administered by device [None]
  - Somnolence [Unknown]
  - Overdose [Unknown]

NARRATIVE: CASE EVENT DATE: 201603
